FAERS Safety Report 8724273 (Version 2)
Quarter: 2012Q4

REPORT INFORMATION
  Report Type: 
  Country: BR (occurrence: BR)
  Receive Date: 20120815
  Receipt Date: 20121101
  Transmission Date: 20130627
  Serious: Yes (Other)
  Sender: FDA-Public Use
  Company Number: BR-ASTRAZENECA-2012SE56042

PATIENT
  Age: 68 Year
  Sex: Male

DRUGS (1)
  1. ATACAND HCT [Suspect]
     Dosage: 16/12.5 MG
     Route: 048

REACTIONS (2)
  - Cerebrovascular accident [Recovered/Resolved]
  - Hypertension [Recovered/Resolved]
